FAERS Safety Report 4897598-6 (Version None)
Quarter: 2006Q1

REPORT INFORMATION
  Report Type: 
  Country: None (occurrence: None)
  Receive Date: 20060130
  Receipt Date: 20060130
  Transmission Date: 20060701
  Serious: Yes (Disabling)
  Sender: FDA-Public Use
  Company Number: None

PATIENT
  Age: 37 Year
  Sex: Male
  Weight: 78.0187 kg

DRUGS (6)
  1. AIRBORNE FORMULA 1X EVERY 3 HOURS KNIGHT-MCDOWELL LABS [Suspect]
     Indication: COUGH
     Dosage: ONE TABLET EVERY 3 HOURS PO
     Route: 048
     Dates: start: 20060123, end: 20060128
  2. AIRBORNE FORMULA 1X EVERY 3 HOURS KNIGHT-MCDOWELL LABS [Suspect]
     Indication: NASOPHARYNGITIS
     Dosage: ONE TABLET EVERY 3 HOURS PO
     Route: 048
     Dates: start: 20060123, end: 20060128
  3. AIRBORNE FORMULA 1X EVERY 3 HOURS KNIGHT-MCDOWELL LABS [Suspect]
     Indication: PROPHYLAXIS
     Dosage: ONE TABLET EVERY 3 HOURS PO
     Route: 048
     Dates: start: 20060123, end: 20060128
  4. AIRBORNE FORMULA 1X EVERY 3 HOURS KNIGHT-MCDOWELL LABS [Suspect]
     Indication: COUGH
     Dosage: ONE TABLET EVERY 3 HOURS PO
     Route: 048
     Dates: start: 20060123, end: 20060128
  5. AIRBORNE FORMULA 1X EVERY 3 HOURS KNIGHT-MCDOWELL LABS [Suspect]
     Indication: NASOPHARYNGITIS
     Dosage: ONE TABLET EVERY 3 HOURS PO
     Route: 048
     Dates: start: 20060123, end: 20060128
  6. AIRBORNE FORMULA 1X EVERY 3 HOURS KNIGHT-MCDOWELL LABS [Suspect]
     Indication: PROPHYLAXIS
     Dosage: ONE TABLET EVERY 3 HOURS PO
     Route: 048
     Dates: start: 20060123, end: 20060128

REACTIONS (5)
  - ABDOMINAL PAIN UPPER [None]
  - HEADACHE [None]
  - NASOPHARYNGITIS [None]
  - PAIN [None]
  - URTICARIA [None]
